FAERS Safety Report 15504504 (Version 1)
Quarter: 2018Q4

REPORT INFORMATION
  Report Type: Spontaneous
  Country: FR (occurrence: FR)
  Receive Date: 20181016
  Receipt Date: 20181016
  Transmission Date: 20190205
  Serious: Yes (Death, Hospitalization)
  Sender: FDA-Public Use
  Company Number: FR-SA-2018SA277777

PATIENT
  Age: 74 Year
  Sex: Female
  Weight: 180 kg

DRUGS (6)
  1. LOVENOX [Suspect]
     Active Substance: ENOXAPARIN SODIUM
     Indication: ANTICOAGULANT THERAPY
     Dosage: 4000 IU, QD
     Route: 058
     Dates: start: 20180808, end: 20180817
  2. AMOXICILLIN. [Suspect]
     Active Substance: AMOXICILLIN
     Indication: POST PROCEDURAL INFECTION
     Dosage: 6 G, QD
     Route: 048
     Dates: start: 20180813, end: 20180814
  3. TAVANIC [Suspect]
     Active Substance: LEVOFLOXACIN
     Indication: POST PROCEDURAL INFECTION
     Dosage: 1000 MG, QD
     Route: 048
     Dates: start: 20180814, end: 20180820
  4. CIPROFLOXACIN HYDROCHLORIDE. [Suspect]
     Active Substance: CIPROFLOXACIN HYDROCHLORIDE
     Indication: POST PROCEDURAL INFECTION
     Dosage: 1500 MG, QD
     Route: 048
     Dates: start: 20180811, end: 20180813
  5. MIDAZOLAM HYDROCHLORIDE. [Suspect]
     Active Substance: MIDAZOLAM HYDROCHLORIDE
     Indication: SEDATION
     Dosage: 0.5 MG, QH
     Route: 042
     Dates: start: 20180816, end: 20180817
  6. DALACINE [CLINDAMYCIN HYDROCHLORIDE] [Suspect]
     Active Substance: CLINDAMYCIN HYDROCHLORIDE
     Indication: POST PROCEDURAL INFECTION
     Dosage: 1800 MG, QD
     Route: 048
     Dates: start: 20180814, end: 20180818

REACTIONS (1)
  - Rash maculo-papular [Recovering/Resolving]

NARRATIVE: CASE EVENT DATE: 20180818
